FAERS Safety Report 9285629 (Version 1)
Quarter: 2013Q2

REPORT INFORMATION
  Report Type: Spontaneous
  Country: US (occurrence: US)
  Receive Date: 20130513
  Receipt Date: 20130513
  Transmission Date: 20140414
  Serious: No
  Sender: FDA-Public Use
  Company Number: US-ASTRAZENECA-2013SE24580

PATIENT
  Age: 66 Year
  Sex: Male
  Weight: 72.6 kg

DRUGS (5)
  1. NEXIUM [Suspect]
     Route: 048
     Dates: start: 20130408
  2. METOPROLOL [Suspect]
     Indication: BLOOD PRESSURE
     Route: 065
  3. CRESTOR [Suspect]
     Route: 048
  4. RAMIPRIL [Concomitant]
  5. NIASPAN [Concomitant]

REACTIONS (2)
  - Flatulence [Unknown]
  - Diarrhoea [Unknown]
